FAERS Safety Report 10702349 (Version 3)
Quarter: 2015Q1

REPORT INFORMATION
  Report Type: Report from Study
  Country: US (occurrence: US)
  Receive Date: 20150109
  Receipt Date: 20150224
  Transmission Date: 20150721
  Serious: Yes (Hospitalization, Other)
  Sender: FDA-Public Use
  Company Number: US-GSKJP-KK201420595GSK1120212002

PATIENT
  Age: 64 Year
  Sex: Female
  Weight: 59.4 kg

DRUGS (5)
  1. ASPIRIN. [Concomitant]
     Active Substance: ASPIRIN
  2. TRAMETINIB [Suspect]
     Active Substance: TRAMETINIB
     Indication: INTRAOCULAR MELANOMA
     Dosage: 1.5 MG, QD
     Route: 048
     Dates: start: 20140522
  3. GSK2141795 [Suspect]
     Active Substance: UPROSERTIB
     Indication: INTRAOCULAR MELANOMA
     Dosage: 50 MG, QD
     Route: 048
     Dates: start: 20140522, end: 20140609
  4. TOPICAL STEROID [Concomitant]
  5. TYLENOL [Concomitant]
     Active Substance: ACETAMINOPHEN

REACTIONS (2)
  - Cerebrovascular accident [Recovered/Resolved]
  - Atrial fibrillation [Recovered/Resolved]

NARRATIVE: CASE EVENT DATE: 20140620
